FAERS Safety Report 18038198 (Version 2)
Quarter: 2020Q3

REPORT INFORMATION
  Report Type: Spontaneous
  Country: CN (occurrence: CN)
  Receive Date: 20200717
  Receipt Date: 20200720
  Transmission Date: 20201103
  Serious: No
  Sender: FDA-Public Use
  Company Number: CN-009507513-2007CHN004048

PATIENT
  Age: 9 Year
  Sex: Male
  Weight: 69 kg

DRUGS (1)
  1. TIENAM [Suspect]
     Active Substance: CILASTATIN SODIUM\IMIPENEM
     Indication: INFECTION
     Dosage: 1G ITGTT Q6H
     Dates: start: 20200615, end: 20200619

REACTIONS (5)
  - Tonsillar hypertrophy [Unknown]
  - Gastrointestinal sounds abnormal [Unknown]
  - Pharyngeal swelling [Unknown]
  - Rash [Recovering/Resolving]
  - Pharyngeal erythema [Unknown]

NARRATIVE: CASE EVENT DATE: 20200618
